FAERS Safety Report 9125382 (Version 1)
Quarter: 2013Q1

REPORT INFORMATION
  Report Type: Spontaneous
  Country: US (occurrence: US)
  Receive Date: 20130117
  Receipt Date: 20130117
  Transmission Date: 20140127
  Serious: No
  Sender: FDA-Public Use
  Company Number: US-BRISTOL-MYERS SQUIBB COMPANY-17062159

PATIENT
  Age: 52 Year
  Sex: Female
  Weight: 90.7 kg

DRUGS (2)
  1. YERVOY [Suspect]
     Indication: METASTATIC OCULAR MELANOMA
     Dates: start: 20121016
  2. CHANTIX [Suspect]
     Dosage: 1 TABLET PER DAY, DISCONTINUED 2 MONTHS AGO.

REACTIONS (1)
  - Tobacco user [Unknown]
